FAERS Safety Report 5479527-X (Version None)
Quarter: 2007Q3

REPORT INFORMATION
  Report Type: 
  Country: None (occurrence: None)
  Receive Date: 20070911
  Receipt Date: 20070226
  Transmission Date: 20080115
  Serious: Yes (Other)
  Sender: FDA-Public Use
  Company Number: 2007-0011264

PATIENT
  Age: 41 Year
  Sex: Male
  Weight: 84.369 kg

DRUGS (2)
  1. ATRIPLA [Suspect]
     Indication: HIV INFECTION
     Dosage: 1 DOSAGE FORMS, 1 IN 1 D, ORAL
     Route: 048
     Dates: start: 20061017, end: 20070112
  2. LIPITOR [Concomitant]

REACTIONS (1)
  - TRANSAMINASES INCREASED [None]
